FAERS Safety Report 8920965 (Version 1)
Quarter: 2012Q4

REPORT INFORMATION
  Report Type: 
  Country: KR (occurrence: KR)
  Receive Date: 20121121
  Receipt Date: 20121121
  Transmission Date: 20130627
  Serious: Yes (Hospitalization, Other)
  Sender: FDA-Public Use
  Company Number: KR-MEDICIS-2012P1064935

PATIENT
  Age: 60 Year
  Sex: Female

DRUGS (2)
  1. METRONIDAZOLE [Suspect]
     Route: 042
  2. METRONIDAZOLE [Suspect]

REACTIONS (2)
  - Toxic encephalopathy [Recovered/Resolved]
  - Neutropenia [Recovered/Resolved]
